FAERS Safety Report 5954674-4 (Version None)
Quarter: 2008Q4

REPORT INFORMATION
  Report Type: 
  Country: None (occurrence: None)
  Receive Date: 20081117
  Receipt Date: 20081105
  Transmission Date: 20090506
  Serious: Yes (Other)
  Sender: FDA-Public Use
  Company Number: PHHY2008CN27263

PATIENT
  Age: 15 Year
  Sex: Male

DRUGS (1)
  1. SEBIVO [Suspect]
     Indication: HEPATITIS B
     Dosage: UNK
     Route: 048
     Dates: end: 20081025

REACTIONS (6)
  - BLOOD UREA INCREASED [None]
  - ENEMA ADMINISTRATION [None]
  - INTENTIONAL OVERDOSE [None]
  - SUICIDE ATTEMPT [None]
  - TRANSAMINASES INCREASED [None]
  - VIRAL LOAD INCREASED [None]
